FAERS Safety Report 4509898-X (Version None)
Quarter: 2004Q4

REPORT INFORMATION
  Report Type: 
  Country: None (occurrence: None)
  Receive Date: 20041119
  Receipt Date: 20041101
  Transmission Date: 20050328
  Serious: Yes (Other)
  Sender: FDA-Public Use
  Company Number: USA041082514

PATIENT
  Age: 8 Year
  Sex: Male

DRUGS (2)
  1. STRATTERA [Suspect]
     Indication: ATTENTION DEFICIT/HYPERACTIVITY DISORDER
     Dosage: 40 MG DAY
     Dates: start: 20040916
  2. ZOLOFT [Concomitant]

REACTIONS (10)
  - AFFECTIVE DISORDER [None]
  - APATHY [None]
  - CONVULSION [None]
  - EMOTIONAL DISORDER [None]
  - FATIGUE [None]
  - HEADACHE [None]
  - HYPERHIDROSIS [None]
  - PERSONALITY CHANGE [None]
  - SINUS DISORDER [None]
  - SLEEP DISORDER [None]
